FAERS Safety Report 4926105-4 (Version None)
Quarter: 2006Q1

REPORT INFORMATION
  Report Type: 
  Country: None (occurrence: None)
  Receive Date: 20060228
  Receipt Date: 20050818
  Transmission Date: 20060701
  Serious: No
  Sender: FDA-Public Use
  Company Number: US-GLAXOSMITHKLINE-A0570865A

PATIENT
  Age: 50 Year
  Sex: Female

DRUGS (3)
  1. LAMICTAL [Suspect]
     Indication: BIPOLAR DISORDER
     Dosage: 200MG PER DAY
     Route: 048
     Dates: start: 20050322, end: 20050803
  2. RESTORIL [Concomitant]
     Dosage: 3G UNKNOWN
     Route: 065
  3. CLONAZEPAM [Concomitant]
     Dosage: .5MG FOUR TIMES PER DAY
     Route: 065

REACTIONS (2)
  - ALOPECIA [None]
  - PARANOIA [None]
